FAERS Safety Report 10763407 (Version 1)
Quarter: 2015Q1

REPORT INFORMATION
  Report Type: Spontaneous
  Country: TR (occurrence: TR)
  Receive Date: 20150204
  Receipt Date: 20150204
  Transmission Date: 20150721
  Serious: Yes (Other)
  Sender: FDA-Public Use
  Company Number: TR-BAXTER-2015BAX004849

PATIENT
  Age: 22 Year
  Sex: Female

DRUGS (6)
  1. NITRIC OXIDE. [Suspect]
     Active Substance: NITRIC OXIDE
     Indication: SUPPORTIVE CARE
     Route: 065
  2. GLYCERYL TRINITRATE [Suspect]
     Active Substance: NITROGLYCERIN
     Indication: SUPPORTIVE CARE
     Dosage: 0.5-1 MCG/KG PER MIN
     Route: 042
  3. DOBUTAMINE [Suspect]
     Active Substance: DOBUTAMINE\DOBUTAMINE HYDROCHLORIDE
     Indication: SUPPORTIVE CARE
     Route: 065
  4. HEPARIN [Suspect]
     Active Substance: HEPARIN SODIUM
     Indication: EXTRACORPOREAL MEMBRANE OXYGENATION
     Route: 065
  5. NOREPINEPHRINE [Suspect]
     Active Substance: NOREPINEPHRINE\NOREPINEPHRINE BITARTRATE
     Indication: SUPPORTIVE CARE
     Route: 065
  6. ILOPROST TROMETAMOL [Suspect]
     Active Substance: ILOPROST
     Indication: SUPPORTIVE CARE
     Dosage: 1-3 NG/KG PER MIN
     Route: 042

REACTIONS (2)
  - Left ventricular dysfunction [Recovering/Resolving]
  - Heparin-induced thrombocytopenia [Recovering/Resolving]
